FAERS Safety Report 5863684-7 (Version None)
Quarter: 2008Q3

REPORT INFORMATION
  Report Type: 
  Country: None (occurrence: None)
  Receive Date: 20080828
  Receipt Date: 20080819
  Transmission Date: 20090109
  Serious: Yes (Death, Hospitalization, Other)
  Sender: FDA-Public Use
  Company Number: JP-PFIZER INC-2008066213

PATIENT
  Sex: Male
  Weight: 45 kg

DRUGS (13)
  1. VFEND [Suspect]
     Indication: PULMONARY MYCOSIS
     Route: 048
     Dates: start: 20080727, end: 20080803
  2. VFEND [Suspect]
     Indication: FUNGAL INFECTION
  3. VFEND [Suspect]
     Dosage: DAILY DOSE:4MG/KG
     Route: 042
     Dates: start: 20080804, end: 20080805
  4. URSO 250 [Concomitant]
     Route: 048
     Dates: start: 20080707, end: 20080727
  5. FLOMOX [Concomitant]
     Indication: BRONCHITIS
     Route: 048
     Dates: start: 20080710, end: 20080727
  6. BIO THREE [Concomitant]
     Indication: DIARRHOEA
     Route: 048
     Dates: start: 20080718, end: 20080805
  7. ALBUMIN TANNATE [Concomitant]
     Route: 048
     Dates: start: 20080722, end: 20080727
  8. LASIX [Concomitant]
     Indication: OEDEMA
     Route: 048
     Dates: start: 20080726, end: 20080730
  9. PREDONINE [Concomitant]
     Indication: INFLAMMATION
     Route: 042
     Dates: start: 20080525, end: 20080804
  10. CARBENIN [Concomitant]
     Indication: INFECTION
     Route: 042
  11. ALL OTHER THERAPEUTIC PRODUCTS [Concomitant]
     Indication: CYTOMEGALOVIRUS ENTEROCOLITIS
     Route: 042
  12. ADONA [Concomitant]
     Indication: HAEMORRHAGIC DIATHESIS
     Route: 048
     Dates: start: 20080802, end: 20080803
  13. ALL OTHER THERAPEUTIC PRODUCTS [Concomitant]
     Route: 042
     Dates: start: 20080710, end: 20080726

REACTIONS (3)
  - ACUTE MYELOID LEUKAEMIA [None]
  - BLOOD ALKALINE PHOSPHATASE INCREASED [None]
  - GAMMA-GLUTAMYLTRANSFERASE INCREASED [None]
